FAERS Safety Report 15193068 (Version 1)
Quarter: 2018Q3

REPORT INFORMATION
  Report Type: Spontaneous
  Country: US (occurrence: US)
  Receive Date: 20180725
  Receipt Date: 20180725
  Transmission Date: 20181010
  Serious: Yes (Other)
  Sender: FDA-Public Use
  Company Number: US-TEVA-2018-US-931719

PATIENT
  Age: 49 Year
  Sex: Female

DRUGS (9)
  1. LIOTHYRONINE [Concomitant]
     Active Substance: LIOTHYRONINE
  2. COPAXONE [Suspect]
     Active Substance: GLATIRAMER ACETATE
     Indication: MULTIPLE SCLEROSIS
     Dosage: PREFILLED SYRINGE
     Route: 058
     Dates: start: 20180125
  3. SERTRALINE [Concomitant]
     Active Substance: SERTRALINE HYDROCHLORIDE
  4. OXYBUTYNIN. [Concomitant]
     Active Substance: OXYBUTYNIN CHLORIDE
  5. MELOXICAM. [Concomitant]
     Active Substance: MELOXICAM
  6. LAMOTRIGINE. [Concomitant]
     Active Substance: LAMOTRIGINE
  7. LEVOTHYROXIN [Concomitant]
     Active Substance: LEVOTHYROXINE
  8. RISPERIDONE. [Concomitant]
     Active Substance: RISPERIDONE
  9. LITHIUM. [Concomitant]
     Active Substance: LITHIUM

REACTIONS (1)
  - Multiple sclerosis [Not Recovered/Not Resolved]
